FAERS Safety Report 8446900-7 (Version None)
Quarter: 2012Q2

REPORT INFORMATION
  Report Type: 
  Country: None (occurrence: None)
  Receive Date: 20120613
  Receipt Date: 20120613
  Transmission Date: 20120825
  Serious: Yes (Other)
  Sender: FDA-Public Use
  Company Number: None

PATIENT
  Sex: Female
  Weight: 104.7809 kg

DRUGS (1)
  1. ENALAPRIL MALEATE [Suspect]

REACTIONS (2)
  - SWOLLEN TONGUE [None]
  - LOCAL SWELLING [None]
